FAERS Safety Report 8393267-9 (Version None)
Quarter: 2012Q2

REPORT INFORMATION
  Report Type: 
  Country: None (occurrence: None)
  Receive Date: 20120529
  Receipt Date: 20120523
  Transmission Date: 20120825
  Serious: Yes (Other)
  Sender: FDA-Public Use
  Company Number: JP-PFIZER INC-2012124294

PATIENT
  Age: 99 Year
  Sex: Male

DRUGS (4)
  1. SUPELON [Concomitant]
     Indication: ANALGESIC THERAPY
     Dosage: UNK
  2. LYRICA [Suspect]
     Dosage: 100 MG/DAY
     Route: 048
     Dates: start: 20110323
  3. INDOMETHACIN [Concomitant]
     Indication: ANALGESIC THERAPY
     Dosage: UNK
  4. LYRICA [Suspect]
     Indication: NEURALGIA
     Dosage: 25 MG, 2X/DAY
     Route: 048
     Dates: start: 20110228, end: 20110322

REACTIONS (3)
  - HALLUCINATION [None]
  - VISUAL ACUITY REDUCED [None]
  - HALLUCINATION, AUDITORY [None]
